FAERS Safety Report 21139956 (Version 1)
Quarter: 2022Q3

REPORT INFORMATION
  Report Type: Spontaneous
  Country: FR (occurrence: FR)
  Receive Date: 20220728
  Receipt Date: 20220728
  Transmission Date: 20221026
  Serious: Yes (Other)
  Sender: FDA-Public Use
  Company Number: None

PATIENT
  Age: 82 Year
  Sex: Female
  Weight: 63 kg

DRUGS (6)
  1. ATENOLOL [Suspect]
     Active Substance: ATENOLOL
     Indication: Atrial fibrillation
     Dosage: 50 MG, FREQUENCY TIME-1 DAY, THERAPY START DATE: NOT ASKED
     Dates: end: 20210104
  2. ATENOLOL [Suspect]
     Active Substance: ATENOLOL
     Indication: Hypertension
     Dosage: 100 MG, FREQUENCY TIME-1 DAY,
     Dates: start: 20210104
  3. PRAVASTATIN SODIUM [Suspect]
     Active Substance: PRAVASTATIN SODIUM
     Indication: Hypercholesterolaemia
     Dosage: UNIT DOSE: 40 MG, THERAPY END DATE: NOT ASKED
     Dates: start: 202110
  4. PRAVASTATIN SODIUM [Suspect]
     Active Substance: PRAVASTATIN SODIUM
     Dosage: 40 MG, FREQUENCY TIME-1 DAY, DURATION-4 YRS
     Dates: start: 2017, end: 20210721
  5. RAMIPRIL [Suspect]
     Active Substance: RAMIPRIL
     Indication: Hypertension
     Dosage: UNIT DOSE: 2.5 MG, FREQUENCY TIME-1 DAY, THERAPY END DATE: NOT ASKED
     Dates: start: 20210721
  6. XARELTO [Suspect]
     Active Substance: RIVAROXABAN
     Indication: Cerebrovascular accident prophylaxis
     Dosage: FORM STRENGTH: 20 MG, UNIT DOSE: 20 MG, FREQUENCY TIME-1 DAY, DURATION-5 YEARS
     Dates: start: 2017

REACTIONS (1)
  - Cholestasis [Not Recovered/Not Resolved]

NARRATIVE: CASE EVENT DATE: 20200101
